FAERS Safety Report 7291477-5 (Version None)
Quarter: 2011Q1

REPORT INFORMATION
  Report Type: 
  Country: None (occurrence: None)
  Receive Date: 20110214
  Receipt Date: 20110208
  Transmission Date: 20110831
  Serious: Yes (Death)
  Sender: FDA-Public Use
  Company Number: GB-ELI_LILLY_AND_COMPANY-GB201102001955

PATIENT
  Age: 20 Year
  Sex: Male

DRUGS (1)
  1. ATOMOXETINE HCL [Suspect]
     Indication: ATTENTION DEFICIT/HYPERACTIVITY DISORDER
     Dosage: 1 D/F, UNK

REACTIONS (2)
  - MENTAL IMPAIRMENT [None]
  - COMPLETED SUICIDE [None]
